FAERS Safety Report 7972861-0 (Version None)
Quarter: 2011Q4

REPORT INFORMATION
  Report Type: 
  Country: None (occurrence: None)
  Receive Date: 20111213
  Receipt Date: 20111205
  Transmission Date: 20120403
  Serious: Yes (Hospitalization, Other)
  Sender: FDA-Public Use
  Company Number: CA-ROCHE-1017516

PATIENT
  Sex: Female

DRUGS (7)
  1. OMEPRAZOLE [Concomitant]
  2. AMLODIPINE [Concomitant]
  3. SYNTHROID [Concomitant]
  4. CRESTOR [Concomitant]
  5. LUCENTIS [Suspect]
     Indication: MACULAR DEGENERATION
     Route: 050
     Dates: start: 20110222
  6. METOPROLOL TARTRATE [Concomitant]
  7. ASPIRIN [Concomitant]

REACTIONS (1)
  - CEREBROVASCULAR ACCIDENT [None]
